FAERS Safety Report 6134877-9 (Version None)
Quarter: 2009Q1

REPORT INFORMATION
  Report Type: 
  Country: None (occurrence: None)
  Receive Date: 20090327
  Receipt Date: 20090306
  Transmission Date: 20090719
  Serious: Yes (Other)
  Sender: FDA-Public Use
  Company Number: GB-PFIZER INC-2009185663

PATIENT

DRUGS (3)
  1. SUNITINIB MALATE [Suspect]
     Indication: ALVEOLAR SOFT PART SARCOMA
     Dosage: 37.5 MG, 1X/DAY
     Route: 048
     Dates: start: 20090121
  2. AMLODIPINE BESILATE [Concomitant]
     Route: 048
     Dates: start: 20090213
  3. CANDESARTAN [Concomitant]
     Route: 048
     Dates: start: 20090213

REACTIONS (4)
  - CENTRAL NERVOUS SYSTEM LESION [None]
  - HALLUCINATION, VISUAL [None]
  - HEADACHE [None]
  - PALMAR-PLANTAR ERYTHRODYSAESTHESIA SYNDROME [None]
